FAERS Safety Report 5895559-1 (Version None)
Quarter: 2008Q3

REPORT INFORMATION
  Report Type: 
  Country: None (occurrence: None)
  Receive Date: 20080924
  Receipt Date: 20080403
  Transmission Date: 20090109
  Serious: Yes (Other)
  Sender: FDA-Public Use
  Company Number: US-ASTRAZENECA-2006UW07906

PATIENT
  Age: 46 Year
  Sex: Male
  Weight: 111.1 kg

DRUGS (8)
  1. SEROQUEL [Suspect]
     Indication: SCHIZOPHRENIA
     Route: 048
     Dates: start: 19970101, end: 20060101
  2. SEROQUEL [Suspect]
     Indication: BIPOLAR DISORDER
     Route: 048
     Dates: start: 19970101, end: 20060101
  3. GEODON [Concomitant]
     Dates: start: 20010101
  4. HALDOL [Concomitant]
     Dates: start: 19970101
  5. RISPERDAL [Concomitant]
     Dates: start: 20030101
  6. STELAZINE [Concomitant]
     Dates: start: 19750101, end: 19770101
  7. THORAZINE [Concomitant]
     Dates: start: 19750101
  8. PROLIXIN [Concomitant]
     Dates: start: 19770101

REACTIONS (5)
  - BLOOD CHOLESTEROL INCREASED [None]
  - BLOOD TRIGLYCERIDES INCREASED [None]
  - DIABETES MELLITUS [None]
  - OBESITY [None]
  - TARDIVE DYSKINESIA [None]
